FAERS Safety Report 19395629 (Version 1)
Quarter: 2021Q2

REPORT INFORMATION
  Report Type: Spontaneous
  Country: US (occurrence: US)
  Receive Date: 20210609
  Receipt Date: 20210609
  Transmission Date: 20210717
  Serious: Yes (Other)
  Sender: FDA-Public Use
  Company Number: US-GILEAD-2021-0534805

PATIENT
  Age: 68 Year
  Sex: Female
  Weight: 91.2 kg

DRUGS (1)
  1. YESCARTA [Suspect]
     Active Substance: AXICABTAGENE CILOLEUCEL
     Indication: DIFFUSE LARGE B-CELL LYMPHOMA
     Dosage: 1 DOSAGE FORM
     Route: 042
     Dates: start: 20210224, end: 20210224

REACTIONS (7)
  - Encephalopathy [Recovering/Resolving]
  - Fatigue [Unknown]
  - Cytokine release syndrome [Recovering/Resolving]
  - Immune effector cell-associated neurotoxicity syndrome [Recovering/Resolving]
  - Decreased appetite [Unknown]
  - Pyrexia [Unknown]
  - Diarrhoea [Unknown]

NARRATIVE: CASE EVENT DATE: 20210228
